FAERS Safety Report 6046560-9 (Version None)
Quarter: 2009Q1

REPORT INFORMATION
  Report Type: 
  Country: None (occurrence: None)
  Receive Date: 20090122
  Receipt Date: 20090109
  Transmission Date: 20090719
  Serious: Yes (Hospitalization)
  Sender: FDA-Public Use
  Company Number: PHHY2007MX00751

PATIENT
  Age: 52 Year
  Sex: Male

DRUGS (5)
  1. DIOVAN HCT [Suspect]
     Indication: HYPERTENSION
     Dosage: 160 /12.5 MG 1 TABLET PER DAY
     Route: 048
     Dates: start: 20071001, end: 20071201
  2. DIOVAN HCT [Suspect]
     Dosage: 160 /12.5 MG 1/2 TABLET PER DAY
     Route: 048
     Dates: start: 20071201
  3. GLIBENCLAMIDE [Concomitant]
     Indication: BLOOD GLUCOSE INCREASED
     Dosage: 1/2 TABLET PER DAY
     Route: 048
  4. FUROSEMIDE [Concomitant]
     Indication: RENAL FAILURE
     Dosage: 1 TABLET BID
  5. CHLORTHALIDONE [Concomitant]
     Indication: RENAL FAILURE
     Dosage: 1/2 TABLET BID

REACTIONS (3)
  - HYPOGLYCAEMIA [None]
  - HYPOTENSION [None]
  - PAIN IN EXTREMITY [None]
